FAERS Safety Report 6763382-1 (Version None)
Quarter: 2010Q2

REPORT INFORMATION
  Report Type: 
  Country: None (occurrence: None)
  Receive Date: 20100608
  Receipt Date: 20100608
  Transmission Date: 20101027
  Serious: Yes (Death)
  Sender: FDA-Public Use
  Company Number: None

PATIENT
  Age: 44 Year
  Sex: Male

DRUGS (2)
  1. LEXAPRO [Suspect]
     Indication: ANXIETY
     Dosage: 20 MG DAILY PO
     Route: 048
     Dates: start: 20090615, end: 20100513
  2. XANAX [Suspect]
     Indication: ANXIETY
     Dosage: DECREASED FROM 4MG T0 .5 MG DAILY PO
     Route: 048
     Dates: start: 20090615, end: 20100513

REACTIONS (4)
  - AKATHISIA [None]
  - COMPLETED SUICIDE [None]
  - IMPAIRED WORK ABILITY [None]
  - INSOMNIA [None]
